FAERS Safety Report 4454985-8 (Version None)
Quarter: 2004Q3

REPORT INFORMATION
  Report Type: 
  Country: None (occurrence: None)
  Receive Date: 20040921
  Receipt Date: 20040901
  Transmission Date: 20050211
  Serious: Yes (Hospitalization)
  Sender: FDA-Public Use
  Company Number: SN-BRISTOL-MYERS SQUIBB COMPANY-12696530

PATIENT
  Age: 35 Year
  Sex: Male

DRUGS (4)
  1. EFAVIRENZ TABS 600 MG [Suspect]
     Indication: HIV INFECTION
     Dosage: THERAPY INTERRUPTED ON 04-AUG-2004 AND RE-STARTED ON 13-AUG-2004.
     Route: 048
     Dates: start: 20040720, end: 20040101
  2. EMTRIVA [Suspect]
     Indication: HIV INFECTION
     Dosage: STOPPED ON 04-AUG-2004, RESTARTED ON 13-AUG-2004
     Route: 048
     Dates: start: 20040720
  3. VIREAD [Suspect]
     Indication: HIV INFECTION
     Dosage: STOPPED ON 04-AUG-2004, RESTARTED ON 13-AUG-2004
     Route: 048
     Dates: start: 20040720
  4. SULFAMETHOXAZOLE + TRIMETHOPRIM [Concomitant]
     Indication: INFECTION PROPHYLAXIS
     Dosage: FOR SEVERAL MONTHS

REACTIONS (7)
  - BRONCHOPNEUMOPATHY [None]
  - CRACKLES LUNG [None]
  - DIARRHOEA [None]
  - DIZZINESS [None]
  - HYPOTENSION [None]
  - PYREXIA [None]
  - VOMITING [None]
